FAERS Safety Report 7875907-3 (Version None)
Quarter: 2011Q4

REPORT INFORMATION
  Report Type: 
  Country: None (occurrence: None)
  Receive Date: 20111031
  Receipt Date: 20111019
  Transmission Date: 20120403
  Serious: Yes (Other)
  Sender: FDA-Public Use
  Company Number: US-ACTELION-A-NJ2011-55762

PATIENT

DRUGS (3)
  1. VENTAVIS [Concomitant]
     Indication: PULMONARY ARTERIAL HYPERTENSION
     Dosage: UNK
     Route: 055
     Dates: start: 20100726
  2. EPOPROSTENOL SODIUM [Concomitant]
     Indication: PULMONARY ARTERIAL HYPERTENSION
     Dosage: UNK
     Route: 041
     Dates: start: 20110323
  3. TRACLEER [Suspect]
     Indication: PULMONARY ARTERIAL HYPERTENSION
     Dosage: UNK
     Route: 048
     Dates: start: 20090924

REACTIONS (5)
  - OESOPHAGEAL HAEMORRHAGE [None]
  - OROPHARYNGEAL NEOPLASM BENIGN [None]
  - INTESTINAL HAEMORRHAGE [None]
  - PARATHYROIDECTOMY [None]
  - VASCULAR CAUTERISATION [None]
